FAERS Safety Report 13843322 (Version 3)
Quarter: 2017Q3

REPORT INFORMATION
  Report Type: Spontaneous
  Country: US (occurrence: US)
  Receive Date: 20170808
  Receipt Date: 20170901
  Transmission Date: 20171127
  Serious: Yes (Other)
  Sender: FDA-Public Use
  Company Number: US-PFIZER INC-2017336046

PATIENT

DRUGS (1)
  1. ROCURONIUM BROMIDE. [Suspect]
     Active Substance: ROCURONIUM BROMIDE
     Dosage: 50+30 MG
     Dates: start: 20170627

REACTIONS (3)
  - Muscle twitching [Unknown]
  - Incorrect dose administered [Unknown]
  - Paralysis [Unknown]

NARRATIVE: CASE EVENT DATE: 20170627
